FAERS Safety Report 6069861-7 (Version None)
Quarter: 2009Q1

REPORT INFORMATION
  Report Type: 
  Country: None (occurrence: None)
  Receive Date: 20090209
  Receipt Date: 20090203
  Transmission Date: 20090719
  Serious: Yes (Hospitalization)
  Sender: FDA-Public Use
  Company Number: NL-BIOGENIDEC-2009BI003746

PATIENT
  Age: 59 Year
  Sex: Female

DRUGS (2)
  1. AVONEX [Suspect]
     Indication: MULTIPLE SCLEROSIS
     Route: 030
     Dates: start: 20070401
  2. GABAPENTIN [Concomitant]
     Indication: NEURALGIA
     Dates: end: 20081201

REACTIONS (3)
  - FALL [None]
  - PNEUMONIA [None]
  - UPPER LIMB FRACTURE [None]
